FAERS Safety Report 5008375-X (Version None)
Quarter: 2006Q2

REPORT INFORMATION
  Report Type: 
  Country: None (occurrence: None)
  Receive Date: 20060523
  Receipt Date: 20021112
  Transmission Date: 20061013
  Serious: Yes (Life-Threatening, Hospitalization, Other)
  Sender: FDA-Public Use
  Company Number: US-BRISTOL-MYERS SQUIBB COMPANY-12107488

PATIENT
  Age: 70 Year
  Sex: Male
  Weight: 95 kg

DRUGS (3)
  1. CISPLATIN [Suspect]
     Indication: BLADDER CANCER
     Dates: start: 20021018, end: 20021018
  2. PACLITAXEL [Suspect]
     Indication: BLADDER CANCER
     Dosage: 1ST DOSE ON 18OCT02
     Dates: start: 20021025, end: 20021025
  3. GEMCITABINE [Suspect]
     Indication: BLADDER CANCER
     Dosage: 1ST DOSE ON 18OCT02
     Dates: start: 20021025, end: 20021025

REACTIONS (4)
  - LEUKOPENIA [None]
  - RENAL FAILURE [None]
  - SEPSIS [None]
  - THROMBOCYTOPENIA [None]
